FAERS Safety Report 17752776 (Version 2)
Quarter: 2021Q1

REPORT INFORMATION
  Report Type: Spontaneous
  Country: US (occurrence: US)
  Receive Date: 20200506
  Receipt Date: 20210330
  Transmission Date: 20210419
  Serious: No
  Sender: FDA-Public Use
  Company Number: US-BAYER-2020-075098

PATIENT
  Age: 53 Year
  Sex: Female

DRUGS (2)
  1. CLIMARA [Suspect]
     Active Substance: ESTRADIOL
     Route: 062
  2. CLIMARA [Suspect]
     Active Substance: ESTRADIOL
     Dosage: UNK, OW
     Route: 062

REACTIONS (4)
  - Product adhesion issue [None]
  - Incorrect dose administered by product [None]
  - Product shape issue [None]
  - Wrong technique in product usage process [None]
